FAERS Safety Report 8310007-X (Version None)
Quarter: 2012Q2

REPORT INFORMATION
  Report Type: 
  Country: None (occurrence: None)
  Receive Date: 20120425
  Receipt Date: 20120419
  Transmission Date: 20120825
  Serious: Yes (Life-Threatening, Other)
  Sender: FDA-Public Use
  Company Number: US-ASTRAZENECA-2011SE19745

PATIENT
  Age: 86 Year
  Sex: Male

DRUGS (3)
  1. NEXIUM [Suspect]
     Route: 048
  2. TOPROL-XL [Suspect]
     Route: 048
  3. CRESTOR [Suspect]
     Route: 048

REACTIONS (19)
  - COMA [None]
  - MUSCULOSKELETAL DISORDER [None]
  - MALAISE [None]
  - INTENTIONAL DRUG MISUSE [None]
  - ACCIDENT [None]
  - GOUT [None]
  - BLOOD PRESSURE INCREASED [None]
  - GLAUCOMA [None]
  - FALL [None]
  - ADVERSE EVENT [None]
  - HYPERCHLORHYDRIA [None]
  - PYREXIA [None]
  - NASOPHARYNGITIS [None]
  - PAIN [None]
  - ULCER [None]
  - BACK INJURY [None]
  - SPINAL DISORDER [None]
  - RESTLESSNESS [None]
  - HAND DEFORMITY [None]
